FAERS Safety Report 16194112 (Version 1)
Quarter: 2019Q2

REPORT INFORMATION
  Report Type: Spontaneous
  Country: US (occurrence: US)
  Receive Date: 20190414
  Receipt Date: 20190414
  Transmission Date: 20190711
  Serious: Yes (Hospitalization)
  Sender: FDA-Public Use
  Company Number: US-JNJFOC-20190401943

PATIENT
  Age: 74 Year
  Sex: Male
  Weight: 74.33 kg

DRUGS (50)
  1. LYRICA [Concomitant]
     Active Substance: PREGABALIN
     Indication: BLOOD CHOLESTEROL INCREASED
     Route: 048
     Dates: start: 199401
  2. LYRICA [Concomitant]
     Active Substance: PREGABALIN
     Indication: TYPE 2 DIABETES MELLITUS
     Route: 048
     Dates: start: 201001
  3. LYRICA [Concomitant]
     Active Substance: PREGABALIN
     Indication: TYPE 2 DIABETES MELLITUS
     Route: 048
     Dates: start: 201001
  4. LYRICA [Concomitant]
     Active Substance: PREGABALIN
     Indication: BLOOD CHOLESTEROL INCREASED
     Route: 048
     Dates: start: 201001
  5. ACETYLSALICYLIC ACID [Suspect]
     Active Substance: ASPIRIN
     Indication: ARTERIOSCLEROSIS CORONARY ARTERY
     Route: 065
     Dates: start: 20170314
  6. LYRICA [Concomitant]
     Active Substance: PREGABALIN
     Indication: TYPE 2 DIABETES MELLITUS
     Route: 048
     Dates: start: 20150319, end: 20190218
  7. LYRICA [Concomitant]
     Active Substance: PREGABALIN
     Indication: BLOOD CHOLESTEROL INCREASED
     Route: 048
     Dates: start: 20150319, end: 20190218
  8. LYRICA [Concomitant]
     Active Substance: PREGABALIN
     Indication: TYPE 2 DIABETES MELLITUS
     Route: 048
     Dates: start: 199401
  9. LYRICA [Concomitant]
     Active Substance: PREGABALIN
     Indication: TYPE 2 DIABETES MELLITUS
     Route: 048
     Dates: start: 201001
  10. LYRICA [Concomitant]
     Active Substance: PREGABALIN
     Indication: TYPE 2 DIABETES MELLITUS
     Route: 048
     Dates: start: 201501
  11. PRAVASTATIN. [Concomitant]
     Active Substance: PRAVASTATIN
     Indication: BLOOD CHOLESTEROL INCREASED
     Route: 048
     Dates: start: 201001
  12. ACETYLSALICYLIC ACID [Suspect]
     Active Substance: ASPIRIN
     Indication: CARDIOVASCULAR EVENT PROPHYLAXIS
     Route: 065
     Dates: start: 20170314
  13. ALLOPURINOL. [Concomitant]
     Active Substance: ALLOPURINOL
     Indication: GOUT
     Route: 048
     Dates: start: 201001
  14. LYRICA [Concomitant]
     Active Substance: PREGABALIN
     Indication: GOUT
     Route: 048
     Dates: start: 20150319, end: 20190218
  15. LYRICA [Concomitant]
     Active Substance: PREGABALIN
     Indication: PAIN IN EXTREMITY
     Route: 048
     Dates: start: 199401
  16. LYRICA [Concomitant]
     Active Substance: PREGABALIN
     Indication: BLOOD CHOLESTEROL INCREASED
     Route: 048
     Dates: start: 201501
  17. LYRICA [Concomitant]
     Active Substance: PREGABALIN
     Indication: PAIN IN EXTREMITY
     Route: 048
     Dates: start: 201501
  18. NOVOLOG [Concomitant]
     Active Substance: INSULIN ASPART
     Indication: TYPE 2 DIABETES MELLITUS
     Route: 003
  19. LYRICA [Concomitant]
     Active Substance: PREGABALIN
     Indication: PAIN IN EXTREMITY
     Route: 048
     Dates: start: 20150319, end: 20190218
  20. LYRICA [Concomitant]
     Active Substance: PREGABALIN
     Indication: BLOOD CHOLESTEROL INCREASED
     Route: 048
     Dates: start: 201001
  21. LYRICA [Concomitant]
     Active Substance: PREGABALIN
     Indication: PAIN IN EXTREMITY
     Route: 048
     Dates: start: 201001
  22. VITAMIN B [Concomitant]
     Active Substance: VITAMIN B
     Indication: ROUTINE HEALTH MAINTENANCE
     Route: 048
     Dates: start: 200001
  23. GARLIC. [Concomitant]
     Active Substance: GARLIC
     Indication: ROUTINE HEALTH MAINTENANCE
     Route: 048
     Dates: start: 200001
  24. LANTUS [Concomitant]
     Active Substance: INSULIN GLARGINE
     Indication: TYPE 2 DIABETES MELLITUS
     Route: 003
     Dates: start: 199401
  25. ERTUGLIFLOZIN [Concomitant]
     Active Substance: ERTUGLIFLOZIN
     Indication: TYPE 2 DIABETES MELLITUS
     Route: 065
     Dates: start: 20150519, end: 20190218
  26. XARELTO [Suspect]
     Active Substance: RIVAROXABAN
     Indication: HYPERTENSION
     Route: 048
     Dates: start: 20180623
  27. LOSARTAN. [Concomitant]
     Active Substance: LOSARTAN
     Indication: HYPERTENSION
     Route: 048
     Dates: start: 201811
  28. DIOVAN [Concomitant]
     Active Substance: VALSARTAN
     Indication: HYPERTENSION
     Route: 065
  29. TRAVATAN [Concomitant]
     Active Substance: TRAVOPROST
     Route: 065
  30. ACETAZOLAMIDE. [Concomitant]
     Active Substance: ACETAZOLAMIDE
     Route: 065
  31. BEVACIZUMAB. [Concomitant]
     Active Substance: BEVACIZUMAB
     Route: 065
  32. LYRICA [Concomitant]
     Active Substance: PREGABALIN
     Indication: TYPE 2 DIABETES MELLITUS
     Route: 048
     Dates: start: 20150319, end: 20190218
  33. LYRICA [Concomitant]
     Active Substance: PREGABALIN
     Indication: GOUT
     Route: 048
     Dates: start: 201001
  34. METFORMIN [Concomitant]
     Active Substance: METFORMIN HYDROCHLORIDE
     Indication: TYPE 2 DIABETES MELLITUS
     Route: 048
  35. CARVEDILOL. [Concomitant]
     Active Substance: CARVEDILOL
     Indication: HYPERTENSION
     Route: 048
     Dates: start: 20110101
  36. ALPHAGAN P [Concomitant]
     Active Substance: BRIMONIDINE TARTRATE
     Route: 065
  37. DORZOLAMIDE HYDROCHLORIDE. [Concomitant]
     Active Substance: DORZOLAMIDE HYDROCHLORIDE
     Route: 065
  38. LUCENTIS [Concomitant]
     Active Substance: RANIBIZUMAB
     Route: 065
  39. COSOPT [Concomitant]
     Active Substance: DORZOLAMIDE HYDROCHLORIDE\TIMOLOL MALEATE
     Route: 065
  40. LYRICA [Concomitant]
     Active Substance: PREGABALIN
     Indication: GOUT
     Route: 048
     Dates: start: 199401
  41. LYRICA [Concomitant]
     Active Substance: PREGABALIN
     Indication: PAIN IN EXTREMITY
     Route: 048
     Dates: start: 201001
  42. LYRICA [Concomitant]
     Active Substance: PREGABALIN
     Indication: TYPE 2 DIABETES MELLITUS
     Route: 048
     Dates: start: 201501
  43. SPIRONOLACTONE. [Concomitant]
     Active Substance: SPIRONOLACTONE
     Indication: HYPERTENSION
     Route: 048
     Dates: start: 201101
  44. ZYMAXID [Concomitant]
     Active Substance: GATIFLOXACIN
     Indication: EYE INJURY
     Route: 065
  45. LYRICA [Concomitant]
     Active Substance: PREGABALIN
     Indication: TYPE 2 DIABETES MELLITUS
     Route: 048
     Dates: start: 199401
  46. LYRICA [Concomitant]
     Active Substance: PREGABALIN
     Indication: GOUT
     Route: 048
     Dates: start: 201001
  47. LYRICA [Concomitant]
     Active Substance: PREGABALIN
     Indication: TYPE 2 DIABETES MELLITUS
     Route: 048
     Dates: start: 201001
  48. LYRICA [Concomitant]
     Active Substance: PREGABALIN
     Indication: GOUT
     Route: 048
     Dates: start: 201501
  49. PREDNISONE. [Concomitant]
     Active Substance: PREDNISONE
     Route: 065
  50. MAXITROL [Concomitant]
     Active Substance: DEXAMETHASONE\NEOMYCIN SULFATE\POLYMYXIN B SULFATE
     Route: 065

REACTIONS (3)
  - Product use in unapproved indication [Unknown]
  - Gastrointestinal haemorrhage [Recovered/Resolved]
  - Haemorrhoids [Not Recovered/Not Resolved]

NARRATIVE: CASE EVENT DATE: 20190211
